FAERS Safety Report 17098036 (Version 1)
Quarter: 2019Q4

REPORT INFORMATION
  Report Type: Spontaneous
  Country: US (occurrence: US)
  Receive Date: 20191105
  Receipt Date: 20191105
  Transmission Date: 20200122
  Serious: Yes (Hospitalization)
  Sender: FDA-Public Use
  Company Number: None

PATIENT
  Age: 89 Year
  Sex: Female

DRUGS (12)
  1. OMEPRAZOLE. [Concomitant]
     Active Substance: OMEPRAZOLE
  2. ADCIRCA [Suspect]
     Active Substance: TADALAFIL
     Indication: PULMONARY ARTERIAL HYPERTENSION
     Route: 048
     Dates: start: 20150903
  3. DILTIAZEM. [Concomitant]
     Active Substance: DILTIAZEM
  4. ADVAIR DISKU AER [Concomitant]
  5. MUCINEX [Concomitant]
     Active Substance: GUAIFENESIN
  6. PREDNISONE. [Concomitant]
     Active Substance: PREDNISONE
  7. FUROSEMIDE. [Concomitant]
     Active Substance: FUROSEMIDE
  8. CARTIA XT [Concomitant]
     Active Substance: DILTIAZEM HYDROCHLORIDE
  9. HYDRALAZINE [Concomitant]
     Active Substance: HYDRALAZINE HYDROCHLORIDE
  10. XARELTO [Concomitant]
     Active Substance: RIVAROXABAN
  11. FERROUS GLUC [Concomitant]
  12. POT CL MICRO [Concomitant]

REACTIONS (1)
  - Rectal haemorrhage [None]

NARRATIVE: CASE EVENT DATE: 201910
